FAERS Safety Report 25699147 (Version 1)
Quarter: 2025Q3

REPORT INFORMATION
  Report Type: Spontaneous
  Country: US (occurrence: US)
  Receive Date: 20250819
  Receipt Date: 20250819
  Transmission Date: 20251020
  Serious: No
  Sender: AUROBINDO
  Company Number: US-AUROBINDO-AUR-APL-2025-025653

PATIENT
  Age: 38 Year

DRUGS (1)
  1. ISOTRETINOIN [Suspect]
     Active Substance: ISOTRETINOIN
     Indication: Product used for unknown indication
     Route: 065
     Dates: start: 20250301

REACTIONS (9)
  - Ear pruritus [Unknown]
  - Ear pain [Unknown]
  - Ear swelling [Unknown]
  - Skin exfoliation [Unknown]
  - Otorrhoea [Unknown]
  - Ear discomfort [Unknown]
  - Skin swelling [Unknown]
  - Wound [Unknown]
  - Wound secretion [Unknown]

NARRATIVE: CASE EVENT DATE: 20250508
